FAERS Safety Report 6765388-5 (Version None)
Quarter: 2010Q2

REPORT INFORMATION
  Report Type: 
  Country: None (occurrence: None)
  Receive Date: 20100609
  Receipt Date: 20100601
  Transmission Date: 20101027
  Serious: Yes (Death)
  Sender: FDA-Public Use
  Company Number: 2010060004

PATIENT
  Age: 62 Year
  Sex: Male

DRUGS (16)
  1. ONSOLIS [Suspect]
     Indication: CANCER PAIN
     Dosage: 800 MCG (200 MCG, 4 IN 1 D), BU
     Route: 002
     Dates: start: 20100523, end: 20100530
  2. DURAGESIC-100 [Concomitant]
  3. WELLBUTRIN [Concomitant]
  4. MICAFUNGIN (MICAFUNGIN) [Concomitant]
  5. ZOLOFT [Concomitant]
  6. RIFAMPIN [Concomitant]
  7. ZOFRAN [Concomitant]
  8. TRAMADOL HCL [Concomitant]
  9. AMBIEN [Concomitant]
  10. DILAUDID [Concomitant]
  11. PROTONIX [Concomitant]
  12. PHENERGAN (PROMETHAZINE) [Concomitant]
  13. TYLENOL (CAPLET) [Concomitant]
  14. CEFEPIME [Concomitant]
  15. NEUPOGEN [Concomitant]
  16. POTASSIUM (POTASSIUMA) [Concomitant]

REACTIONS (3)
  - LEUKAEMIA [None]
  - MALIGNANT NEOPLASM PROGRESSION [None]
  - METASTATIC MALIGNANT MELANOMA [None]
